FAERS Safety Report 4559188-4 (Version None)
Quarter: 2005Q1

REPORT INFORMATION
  Report Type: 
  Country: None (occurrence: None)
  Receive Date: 20050121
  Receipt Date: 20050121
  Transmission Date: 20050727
  Serious: Yes (Other)
  Sender: FDA-Public Use
  Company Number: None

PATIENT
  Sex: Male
  Weight: 107.5 kg

DRUGS (1)
  1. TRILEPTAL [Suspect]
     Dosage: 1200MG   BID   ORAL
     Route: 048

REACTIONS (1)
  - HYPONATRAEMIA [None]
